FAERS Safety Report 24205527 (Version 6)
Quarter: 2025Q1

REPORT INFORMATION
  Report Type: Spontaneous
  Country: US (occurrence: US)
  Receive Date: 20240813
  Receipt Date: 20250217
  Transmission Date: 20250409
  Serious: Yes (Other)
  Sender: MERCK SHARP & DOHME LLC
  Company Number: US-PFIZER INC-PV202400104840

PATIENT
  Age: 70 Year
  Sex: Female

DRUGS (3)
  1. TUCATINIB [Suspect]
     Active Substance: TUCATINIB
     Indication: Breast cancer female
     Dosage: DOSE DESCRIPTION : TAKE 50MG WITH 150MG (200MG, TWICE DAILY)?DAILY DOSE : 300 MILLIGRAM?CONCENTRA...
  2. TUCATINIB [Suspect]
     Active Substance: TUCATINIB
     Indication: Breast cancer female
     Dosage: DOSE DESCRIPTION : TAKE 50MG WITH 150MG (200MG, TWICE DAILY)?DAILY DOSE : 100 MILLIGRAM
  3. TUCATINIB [Suspect]
     Active Substance: TUCATINIB
     Indication: Breast cancer female
     Dosage: 150 MG + 50 MG DIREC ONS FOR EACH STRENGTH: 1 TABLET BY MOUTH TWO MES A DAY/150 MG 1 TABLET BY MO...
     Route: 048

REACTIONS (4)
  - Pneumonia [Unknown]
  - Blood glucose decreased [Unknown]
  - Product label confusion [Unknown]
  - Product prescribing issue [Unknown]
